FAERS Safety Report 8076332-5 (Version None)
Quarter: 2012Q1

REPORT INFORMATION
  Report Type: 
  Country: None (occurrence: None)
  Receive Date: 20120127
  Receipt Date: 20120119
  Transmission Date: 20120608
  Serious: Yes (Hospitalization)
  Sender: FDA-Public Use
  Company Number: FR-ROCHE-1032266

PATIENT
  Sex: Male

DRUGS (9)
  1. ASPIRIN [Concomitant]
  2. ZOPICLONE [Concomitant]
  3. TYGACIL [Suspect]
     Indication: PRODUCT USED FOR UNKNOWN INDICATION
     Dates: start: 20110712, end: 20110811
  4. NEBIVOLOL HCL [Concomitant]
     Route: 048
  5. ROCEPHIN [Suspect]
     Indication: PRODUCT USED FOR UNKNOWN INDICATION
     Route: 058
     Dates: start: 20110712, end: 20110811
  6. PERINDOPRIL ERBUMINE [Concomitant]
     Route: 048
  7. LASIX [Concomitant]
     Route: 048
  8. ATORVASTATIN [Concomitant]
  9. AMLODIPINE BESYLATE [Concomitant]
     Route: 048

REACTIONS (2)
  - PANCREATITIS [None]
  - HEPATITIS [None]
